FAERS Safety Report 4774167-X (Version None)
Quarter: 2005Q3

REPORT INFORMATION
  Report Type: 
  Country: None (occurrence: None)
  Receive Date: 20050914
  Receipt Date: 20050411
  Transmission Date: 20060218
  Serious: Yes (Hospitalization)
  Sender: FDA-Public Use
  Company Number: 163-20785-05040212

PATIENT
  Age: 78 Year
  Sex: Female

DRUGS (2)
  1. THALOMID [Suspect]
     Indication: MULTIPLE MYELOMA
     Dosage: 50 MG, DAILY, ORAL; 100 MG, DAILY, ORAL
     Route: 048
     Dates: start: 20041217, end: 20050101
  2. THALOMID [Suspect]
     Indication: MULTIPLE MYELOMA
     Dosage: 50 MG, DAILY, ORAL; 100 MG, DAILY, ORAL
     Route: 048
     Dates: start: 20050120

REACTIONS (1)
  - CHEST PAIN [None]
